FAERS Safety Report 7610685-4 (Version None)
Quarter: 2011Q3

REPORT INFORMATION
  Report Type: 
  Country: None (occurrence: None)
  Receive Date: 20110715
  Receipt Date: 20110712
  Transmission Date: 20111222
  Serious: Yes (Other)
  Sender: FDA-Public Use
  Company Number: US-PFIZER INC-2011158009

PATIENT
  Sex: Male
  Weight: 104.31 kg

DRUGS (3)
  1. CELEBREX [Suspect]
     Indication: TRAUMATIC SHOCK
     Dosage: 200 MG, 1X/DAY
     Route: 048
     Dates: start: 19900101
  2. NORCO [Concomitant]
     Indication: SPONDYLITIS
     Dosage: 10/325 MG, UNK
  3. CELEBREX [Suspect]
     Indication: PAIN

REACTIONS (3)
  - SWOLLEN TONGUE [None]
  - CHOKING [None]
  - BLOOD CHOLESTEROL INCREASED [None]
